FAERS Safety Report 9188013 (Version 2)
Quarter: 2013Q2

REPORT INFORMATION
  Report Type: Spontaneous
  Country: US (occurrence: US)
  Receive Date: 20130325
  Receipt Date: 20130501
  Transmission Date: 20140414
  Serious: Yes (Hospitalization)
  Sender: FDA-Public Use
  Company Number: US-GLAXOSMITHKLINE-A1016191A

PATIENT
  Age: 75 Year
  Sex: Female

DRUGS (6)
  1. ADVAIR [Suspect]
     Indication: CHRONIC OBSTRUCTIVE PULMONARY DISEASE
     Dosage: 1PUFF TWICE PER DAY
     Route: 055
  2. CHOLESTEROL REDUCING AGENT NAME NOT KNOWN [Concomitant]
  3. BLOOD PRESSURE MEDICATION [Concomitant]
  4. THYROID MEDICATION [Concomitant]
  5. STEROIDS [Concomitant]
  6. COMBIVENT [Concomitant]

REACTIONS (5)
  - Drug ineffective [Unknown]
  - Dyspnoea [Unknown]
  - Cough [Unknown]
  - Visual impairment [Unknown]
  - Product quality issue [Unknown]
